FAERS Safety Report 5483774-0 (Version None)
Quarter: 2007Q4

REPORT INFORMATION
  Report Type: 
  Country: None (occurrence: None)
  Receive Date: 20071012
  Receipt Date: 20071010
  Transmission Date: 20080405
  Serious: Yes (Death, Life-Threatening, Disabling)
  Sender: FDA-Public Use
  Company Number: A0687531A

PATIENT
  Sex: Male

DRUGS (1)
  1. PAXIL [Suspect]
     Indication: DRUG USE FOR UNKNOWN INDICATION

REACTIONS (12)
  - ANXIETY [None]
  - ATRIAL SEPTAL DEFECT [None]
  - DEATH [None]
  - DILATATION VENTRICULAR [None]
  - DRUG EXPOSURE DURING PREGNANCY [None]
  - EBSTEIN'S ANOMALY [None]
  - HEART DISEASE CONGENITAL [None]
  - INJURY [None]
  - LABORATORY TEST ABNORMAL [None]
  - PAIN [None]
  - PATENT DUCTUS ARTERIOSUS [None]
  - SCAR [None]
